FAERS Safety Report 16294725 (Version 1)
Quarter: 2019Q2

REPORT INFORMATION
  Report Type: Spontaneous
  Country: US (occurrence: US)
  Receive Date: 20190509
  Receipt Date: 20190509
  Transmission Date: 20190711
  Serious: No
  Sender: FDA-Public Use
  Company Number: US-ROCHE-2216772

PATIENT
  Sex: Female

DRUGS (5)
  1. BIOTIN [Concomitant]
     Active Substance: BIOTIN
     Route: 065
  2. CARVEDILOL. [Concomitant]
     Active Substance: CARVEDILOL
     Route: 065
  3. CARBINOXAMINE [Concomitant]
     Active Substance: CARBINOXAMINE
     Route: 065
  4. MONTELUKAST [Concomitant]
     Active Substance: MONTELUKAST SODIUM
  5. ESBRIET [Suspect]
     Active Substance: PIRFENIDONE
     Indication: IDIOPATHIC PULMONARY FIBROSIS
     Dosage: 3 TABLETS,
     Route: 048
     Dates: start: 20180112

REACTIONS (1)
  - Dizziness [Not Recovered/Not Resolved]
